FAERS Safety Report 9458675 (Version 1)
Quarter: 2013Q3

REPORT INFORMATION
  Report Type: Spontaneous
  Country: US (occurrence: None)
  Receive Date: 20130812
  Receipt Date: 20130812
  Transmission Date: 20140515
  Serious: Yes (Hospitalization)
  Sender: FDA-Public Use
  Company Number: AUR-APL-2013-06444

PATIENT
  Age: 42 Year
  Sex: Male

DRUGS (4)
  1. ABACAVIR [Suspect]
     Indication: ANTIRETROVIRAL THERAPY
  2. TENOFOVIR [Suspect]
     Indication: ANTIRETROVIRAL THERAPY
  3. EFAVIRENZ (EFAVIRENZ) [Concomitant]
  4. EMTRICITABINE [Concomitant]

REACTIONS (6)
  - Renal failure acute [None]
  - Rhabdomyolysis [None]
  - Perineal abscess [None]
  - Haemodialysis [None]
  - Muscle abscess [None]
  - Disease recurrence [None]
